FAERS Safety Report 9438206 (Version 1)
Quarter: 2013Q3

REPORT INFORMATION
  Report Type: Spontaneous
  Country: US (occurrence: US)
  Receive Date: 20130802
  Receipt Date: 20130802
  Transmission Date: 20140515
  Serious: No
  Sender: FDA-Public Use
  Company Number: US-BRISTOL-MYERS SQUIBB COMPANY-17380734

PATIENT
  Age: 72 Year
  Sex: Female
  Weight: 63 kg

DRUGS (4)
  1. COUMADIN [Suspect]
     Dosage: ONG
     Dates: start: 20121105
  2. ALLEGRA [Suspect]
     Indication: NASAL CONGESTION
     Dosage: TAB
     Route: 048
     Dates: start: 20121105, end: 20121205
  3. ALLEGRA [Suspect]
     Indication: EYE ALLERGY
     Dosage: TAB
     Route: 048
     Dates: start: 20121105, end: 20121205
  4. ALLEGRA [Suspect]
     Indication: RHINORRHOEA
     Dosage: TAB
     Route: 048
     Dates: start: 20121105, end: 20121205

REACTIONS (1)
  - Prothrombin level decreased [Recovered/Resolved]
